FAERS Safety Report 18114512 (Version 3)
Quarter: 2021Q2

REPORT INFORMATION
  Report Type: Spontaneous
  Country: JP (occurrence: JP)
  Receive Date: 20200805
  Receipt Date: 20210420
  Transmission Date: 20210717
  Serious: Yes (Life-Threatening, Other)
  Sender: FDA-Public Use
  Company Number: JP-BRISTOL-MYERS SQUIBB COMPANY-BMS-2020-062505

PATIENT
  Age: 80 Year
  Sex: Male

DRUGS (1)
  1. OPDIVO [Suspect]
     Active Substance: NIVOLUMAB
     Indication: GASTRIC CANCER
     Dosage: UNK
     Route: 041
     Dates: end: 202003

REACTIONS (4)
  - Adrenal insufficiency [Recovering/Resolving]
  - Pruritus [Recovered/Resolved]
  - Shock [Unknown]
  - Infection [Unknown]

NARRATIVE: CASE EVENT DATE: 202007
